FAERS Safety Report 7395989-5 (Version None)
Quarter: 2011Q2

REPORT INFORMATION
  Report Type: 
  Country: None (occurrence: None)
  Receive Date: 20110406
  Receipt Date: 20110323
  Transmission Date: 20111010
  Serious: No
  Sender: FDA-Public Use
  Company Number: US-BIOGENIDEC-2011BI012442

PATIENT
  Age: 30 Year
  Sex: Female

DRUGS (3)
  1. AVONEX [Suspect]
     Indication: MULTIPLE SCLEROSIS
     Route: 030
     Dates: start: 20110101
  2. AVONEX [Suspect]
     Route: 030
     Dates: start: 20040301, end: 20051101
  3. AVONEX [Suspect]
     Route: 030
     Dates: start: 20071101, end: 20090701

REACTIONS (4)
  - BACK PAIN [None]
  - PYREXIA [None]
  - PAIN [None]
  - ABDOMINAL PAIN UPPER [None]
